FAERS Safety Report 24866481 (Version 1)
Quarter: 2025Q1

REPORT INFORMATION
  Report Type: Spontaneous
  Country: US (occurrence: US)
  Receive Date: 20250121
  Receipt Date: 20250121
  Transmission Date: 20250408
  Serious: No
  Sender: CURRAX PHARMACEUTICALS
  Company Number: US-CURRAX PHARMACEUTICALS LLC-US-2023CUR001408

PATIENT
  Age: 59 Year
  Sex: Female

DRUGS (1)
  1. CONTRAVE [Suspect]
     Active Substance: BUPROPION HYDROCHLORIDE\NALTREXONE HYDROCHLORIDE
     Indication: Product used for unknown indication
     Dosage: STRENGTH: 8/90MG, 1 DOSAGE FORM, QD
     Route: 065
     Dates: start: 20230404, end: 20230404

REACTIONS (8)
  - Nausea [Recovering/Resolving]
  - Feeling abnormal [Unknown]
  - Dizziness [Recovering/Resolving]
  - Illness [Unknown]
  - Vomiting [Unknown]
  - Headache [Unknown]
  - Retching [Recovering/Resolving]
  - Ill-defined disorder [Recovering/Resolving]

NARRATIVE: CASE EVENT DATE: 20230404
